FAERS Safety Report 8610787-X (Version None)
Quarter: 2012Q3

REPORT INFORMATION
  Report Type: 
  Country: None (occurrence: None)
  Receive Date: 20120822
  Receipt Date: 20120809
  Transmission Date: 20120928
  Serious: Yes (Hospitalization)
  Sender: FDA-Public Use
  Company Number: US-ELI_LILLY_AND_COMPANY-US201208003271

PATIENT
  Sex: Female

DRUGS (4)
  1. GABAPENTIN [Concomitant]
     Dosage: 300 MG, TID
  2. BENAZEPRIL HYDROCHLORIDE [Concomitant]
     Dosage: 40 MG, QD
  3. SENOKOT [Concomitant]
     Dosage: UNK, QOD
  4. FORTEO [Suspect]
     Dosage: 20 UG, QD
     Dates: start: 20120703, end: 20120715

REACTIONS (3)
  - NEURALGIA [None]
  - CONSTIPATION [None]
  - SURGERY [None]
